FAERS Safety Report 9709156 (Version 3)
Quarter: 2013Q4

REPORT INFORMATION
  Report Type: Spontaneous
  Country: IL (occurrence: IL)
  Receive Date: 20131125
  Receipt Date: 20131217
  Transmission Date: 20140711
  Serious: Yes (Other)
  Sender: FDA-Public Use
  Company Number: IL-ABBVIE-13P-082-1085351-00

PATIENT
  Age: 27 Year
  Sex: Female

DRUGS (4)
  1. HUMIRA [Suspect]
     Indication: CROHN^S DISEASE
     Dates: start: 201211, end: 201304
  2. HUMIRA [Suspect]
     Indication: COLITIS ULCERATIVE
  3. RAFASAL [Concomitant]
     Indication: PRODUCT USED FOR UNKNOWN INDICATION
  4. UNKNOWN DRUG [Concomitant]
     Indication: MOOD ALTERED

REACTIONS (3)
  - Hepatosplenic T-cell lymphoma [Not Recovered/Not Resolved]
  - Enteropathy-associated T-cell lymphoma [Not Recovered/Not Resolved]
  - Lymphoproliferative disorder [Unknown]
